FAERS Safety Report 6288359-4 (Version None)
Quarter: 2009Q3

REPORT INFORMATION
  Report Type: 
  Country: None (occurrence: None)
  Receive Date: 20090729
  Receipt Date: 20090723
  Transmission Date: 20100115
  Serious: Yes (Death)
  Sender: FDA-Public Use
  Company Number: KR-CELGENEUS-090-20785-09070771

PATIENT
  Sex: Male
  Weight: 59.5 kg

DRUGS (1)
  1. THALIDOMIDE [Suspect]
     Dosage: UNKNOWN
     Route: 048
     Dates: start: 20090626

REACTIONS (1)
  - WALDENSTROM'S MACROGLOBULINAEMIA [None]
